FAERS Safety Report 6754840-4 (Version None)
Quarter: 2010Q2

REPORT INFORMATION
  Report Type: 
  Country: None (occurrence: None)
  Receive Date: 20100524
  Receipt Date: 20100209
  Transmission Date: 20101027
  Serious: No
  Sender: FDA-Public Use
  Company Number: 006540

PATIENT
  Sex: Male
  Weight: 78 kg

DRUGS (2)
  1. CIMZIA [Suspect]
     Indication: CROHN'S DISEASE
     Dosage: (400 MG SUBCUTANEOUS)
     Route: 058
     Dates: start: 20091101
  2. PENTASA [Concomitant]

REACTIONS (1)
  - ERECTILE DYSFUNCTION [None]
